FAERS Safety Report 24827333 (Version 3)
Quarter: 2025Q2

REPORT INFORMATION
  Report Type: Spontaneous
  Country: US (occurrence: US)
  Receive Date: 20250109
  Receipt Date: 20250513
  Transmission Date: 20250716
  Serious: No
  Sender: SANOFI AVENTIS
  Company Number: US-SA-2025SA006899

PATIENT
  Age: 54 Year
  Sex: Female

DRUGS (1)
  1. DUPIXENT [Suspect]
     Active Substance: DUPILUMAB
     Indication: Eosinophilic oesophagitis
     Dosage: 300 MG, QW
     Route: 058
     Dates: start: 20240416, end: 202503

REACTIONS (6)
  - Weight increased [Unknown]
  - Weight loss poor [Unknown]
  - Insomnia [Unknown]
  - Urticaria [Unknown]
  - Injection site bruising [Unknown]
  - Injection site swelling [Unknown]

NARRATIVE: CASE EVENT DATE: 20250101
